FAERS Safety Report 6790804-2 (Version None)
Quarter: 2010Q2

REPORT INFORMATION
  Report Type: 
  Country: None (occurrence: None)
  Receive Date: 20100624
  Receipt Date: 20100611
  Transmission Date: 20101027
  Serious: No
  Sender: FDA-Public Use
  Company Number: JP-ELI_LILLY_AND_COMPANY-JP201006003308

PATIENT
  Age: 24 Year
  Sex: Female

DRUGS (5)
  1. ZYPREXA [Suspect]
     Dosage: 40 MG, DAILY (1/D)
     Route: 048
  2. ZYPREXA [Suspect]
     Dosage: 20 MG, DAILY (1/D)
     Route: 048
     Dates: start: 20100610
  3. TEGRETOL [Concomitant]
     Dosage: 400 MG, DAILY (1/D)
     Route: 048
     Dates: end: 20100610
  4. CONSTAN [Concomitant]
     Dosage: UNK, UNKNOWN
     Route: 048
     Dates: start: 20100101
  5. SEROQUEL [Concomitant]
     Dosage: UNK, UNKNOWN
     Route: 048
     Dates: start: 20100501

REACTIONS (3)
  - GRANULOCYTOPENIA [None]
  - OVERDOSE [None]
  - RED BLOOD CELL COUNT DECREASED [None]
